FAERS Safety Report 10050034 (Version 5)
Quarter: 2014Q2

REPORT INFORMATION
  Report Type: Spontaneous
  Country: JP (occurrence: JP)
  Receive Date: 20140401
  Receipt Date: 20140611
  Transmission Date: 20141212
  Serious: Yes (Death, Other)
  Sender: FDA-Public Use
  Company Number: JP-PFIZER INC-2014023035

PATIENT
  Age: 84 Year
  Sex: Female

DRUGS (13)
  1. JZOLOFT [Suspect]
     Dosage: 25 MG, 2X/DAY
     Route: 048
     Dates: start: 20131225, end: 20140122
  2. ABILIT [Suspect]
     Dosage: UNK
     Dates: start: 201401, end: 20140122
  3. DESYREL [Concomitant]
     Indication: DEPRESSION
     Dosage: UNK
     Dates: end: 20131225
  4. BROTIZOLAM [Concomitant]
     Dosage: UNK
     Dates: start: 20131101, end: 20131225
  5. ABILIFY [Concomitant]
     Dosage: UNK
     Dates: start: 20131101, end: 20131225
  6. ACETAMINOPHEN [Concomitant]
     Dosage: 1.5 DF, UNK
     Dates: start: 20131108, end: 20131114
  7. ACETAMINOPHEN [Concomitant]
     Dosage: 1 DF, UNK
     Dates: start: 20131115, end: 20131121
  8. ACETAMINOPHEN [Concomitant]
     Dosage: 0.5 DF, UNK
     Dates: start: 20131122, end: 20131128
  9. ACETAMINOPHEN [Concomitant]
     Dosage: 1.5 DF, UNK
     Dates: start: 20131206, end: 20140108
  10. ACETAMINOPHEN [Concomitant]
     Dosage: 1 DF, UNK
     Dates: start: 200401, end: 20140205
  11. ACETAMINOPHEN [Concomitant]
     Dosage: UNK
     Dates: start: 20140206, end: 20140213
  12. HOKUNALIN [Concomitant]
     Dosage: UNK
     Dates: start: 20131125, end: 20140205
  13. HOKUNALIN [Concomitant]
     Dosage: UNK
     Dates: start: 20140206, end: 20140213

REACTIONS (3)
  - Pneumonia [Fatal]
  - Liver disorder [Recovered/Resolved]
  - Decreased appetite [Not Recovered/Not Resolved]
